FAERS Safety Report 6657177-7 (Version None)
Quarter: 2010Q1

REPORT INFORMATION
  Report Type: 
  Country: None (occurrence: None)
  Receive Date: 20100330
  Receipt Date: 20100219
  Transmission Date: 20100710
  Serious: No
  Sender: FDA-Public Use
  Company Number: US-JNJFOC-20100209704

PATIENT
  Age: 58 Year
  Sex: Female
  Weight: 53.07 kg

DRUGS (1)
  1. INVEGA SUSTENNA [Suspect]
     Indication: DRUG USE FOR UNKNOWN INDICATION
     Route: 030

REACTIONS (6)
  - DRY THROAT [None]
  - FAECES HARD [None]
  - FLATULENCE [None]
  - HEADACHE [None]
  - INJECTION SITE REACTION [None]
  - PYREXIA [None]
